FAERS Safety Report 7019914-1 (Version None)
Quarter: 2010Q3

REPORT INFORMATION
  Report Type: 
  Country: None (occurrence: None)
  Receive Date: 20100929
  Receipt Date: 20100917
  Transmission Date: 20110219
  Serious: Yes (Other)
  Sender: FDA-Public Use
  Company Number: US-JNJFOC-20100906204

PATIENT
  Sex: Female
  Weight: 54.43 kg

DRUGS (15)
  1. REMICADE [Suspect]
     Indication: RHEUMATOID ARTHRITIS
     Route: 042
  2. REMICADE [Suspect]
     Route: 042
  3. METHOTREXATE [Concomitant]
     Indication: RHEUMATOID ARTHRITIS
  4. PRAVASTATIN [Concomitant]
  5. NEURONTIN [Concomitant]
     Indication: INJURY
  6. NEURONTIN [Concomitant]
     Indication: CONVULSION
  7. BENTYL [Concomitant]
     Indication: GASTRIC DISORDER
  8. MECLIZINE [Concomitant]
     Indication: DIZZINESS
  9. BONIVA [Concomitant]
     Indication: OSTEOPOROSIS
  10. METOPROLOL TARTRATE [Concomitant]
     Indication: CARDIAC DISORDER
  11. POTASSIUM [Concomitant]
  12. BIOTIN [Concomitant]
  13. VITAMIN D [Concomitant]
  14. OXYCODONE [Concomitant]
  15. CO-Q10 [Concomitant]

REACTIONS (8)
  - ARTHRALGIA [None]
  - CARTILAGE INJURY [None]
  - FATIGUE [None]
  - FOOT OPERATION [None]
  - GROIN PAIN [None]
  - INFLUENZA LIKE ILLNESS [None]
  - INTERVERTEBRAL DISC PROTRUSION [None]
  - THYROID DISORDER [None]
